FAERS Safety Report 10028380 (Version 3)
Quarter: 2014Q2

REPORT INFORMATION
  Report Type: Spontaneous
  Country: US (occurrence: US)
  Receive Date: 20140321
  Receipt Date: 20140630
  Transmission Date: 20141212
  Serious: Yes (Other)
  Sender: FDA-Public Use
  Company Number: US-PFIZER INC-2014077727

PATIENT
  Age: 73 Year
  Sex: Female
  Weight: 64 kg

DRUGS (8)
  1. LIPITOR [Suspect]
     Indication: LOW DENSITY LIPOPROTEIN INCREASED
     Dosage: 10 MG, 1X/DAY
     Route: 048
     Dates: start: 2001, end: 2012
  2. LIPITOR [Suspect]
     Indication: CARDIOVASCULAR EVENT PROPHYLAXIS
  3. MULTIVITAMINS [Concomitant]
     Indication: ROUTINE HEALTH MAINTENANCE
     Dosage: 1 DF, 1X/DAY
     Dates: start: 1993
  4. VITAMIN C [Concomitant]
     Indication: ROUTINE HEALTH MAINTENANCE
     Dosage: 1 DF, 1X/DAY
     Dates: start: 1993
  5. CITRACAL [Concomitant]
     Indication: BONE DISORDER
     Dosage: 4 DF, 1X/DAY
     Dates: start: 2004
  6. VITAMIN B [Concomitant]
     Indication: ROUTINE HEALTH MAINTENANCE
     Dosage: 1 DF, 1X/DAY
     Dates: start: 2004
  7. FISH OIL [Concomitant]
     Indication: ROUTINE HEALTH MAINTENANCE
     Dosage: 1 DF, 1X/DAY
     Dates: start: 2004
  8. BABY ASPIRIN [Concomitant]
     Indication: ROUTINE HEALTH MAINTENANCE
     Dosage: 1 DF, 1X/DAY
     Dates: start: 2004

REACTIONS (1)
  - Type 2 diabetes mellitus [Not Recovered/Not Resolved]
